FAERS Safety Report 12660750 (Version 2)
Quarter: 2016Q3

REPORT INFORMATION
  Report Type: Spontaneous
  Country: US (occurrence: US)
  Receive Date: 20160817
  Receipt Date: 20160901
  Transmission Date: 20161109
  Serious: No
  Sender: FDA-Public Use
  Company Number: US-RELYPSA-RLY2016001208

PATIENT
  Sex: Female

DRUGS (13)
  1. ALPRAZOLAM. [Concomitant]
     Active Substance: ALPRAZOLAM
  2. ASCORBIC ACID. [Concomitant]
     Active Substance: ASCORBIC ACID
  3. FLONASE [Concomitant]
     Active Substance: FLUTICASONE PROPIONATE
  4. LOSARTAN POTASSIUM. [Concomitant]
     Active Substance: LOSARTAN POTASSIUM
  5. DOCUSATE SODIUM. [Concomitant]
     Active Substance: DOCUSATE SODIUM
  6. ATORVASTATIN [Concomitant]
     Active Substance: ATORVASTATIN
  7. GABAPENTIN. [Concomitant]
     Active Substance: GABAPENTIN
  8. NOVOLOG [Concomitant]
     Active Substance: INSULIN ASPART
  9. VELTASSA [Suspect]
     Active Substance: PATIROMER
     Indication: HYPERKALAEMIA
     Dosage: 8.4 G, QD
     Route: 048
  10. VITAMIN B12 [Concomitant]
     Active Substance: CYANOCOBALAMIN
  11. FERROUS GLUCONATE [Concomitant]
     Active Substance: FERROUS GLUCONATE
  12. FOLIC ACID. [Concomitant]
     Active Substance: FOLIC ACID
  13. OXYCODONE HYDROCHLORIDE. [Concomitant]
     Active Substance: OXYCODONE HYDROCHLORIDE

REACTIONS (3)
  - Fatigue [Unknown]
  - Abdominal discomfort [Unknown]
  - Abdominal pain [Unknown]
